FAERS Safety Report 15378381 (Version 1)
Quarter: 2018Q3

REPORT INFORMATION
  Report Type: Spontaneous
  Country: US (occurrence: US)
  Receive Date: 20180913
  Receipt Date: 20180913
  Transmission Date: 20181010
  Serious: Yes (Other)
  Sender: FDA-Public Use
  Company Number: US-PFIZER INC-2018366194

PATIENT
  Age: 42 Year
  Sex: Female

DRUGS (1)
  1. CHLORAMPHENICOL [Suspect]
     Active Substance: CHLORAMPHENICOL
     Indication: ENTEROCOCCAL INFECTION
     Dosage: 500 MG, 4X/DAY(EVERY 6 H)
     Route: 042

REACTIONS (3)
  - Hyperbilirubinaemia [Unknown]
  - Drug ineffective [Unknown]
  - Renal impairment [Unknown]
